FAERS Safety Report 6737376-6 (Version None)
Quarter: 2010Q2

REPORT INFORMATION
  Report Type: 
  Country: None (occurrence: None)
  Receive Date: 20100524
  Receipt Date: 20100513
  Transmission Date: 20101027
  Serious: Yes (Death, Hospitalization)
  Sender: FDA-Public Use
  Company Number: DE-JNJFOC-20100407837

PATIENT
  Sex: Male

DRUGS (11)
  1. IBUPROFEN [Suspect]
     Indication: PAIN
     Route: 048
  2. TOLTERODINE [Suspect]
     Indication: INCONTINENCE
     Route: 048
  3. CYNT [Suspect]
     Indication: CARDIAC FAILURE
     Route: 048
  4. TORASEMIDE [Suspect]
     Indication: HYPERTENSION
  5. ALLOPURINOL [Suspect]
     Indication: HYPERURICAEMIA
     Route: 048
  6. NOVODIGAL [Suspect]
     Indication: CARDIAC FAILURE
     Route: 048
  7. ASPIRIN [Suspect]
     Indication: THROMBOSIS PROPHYLAXIS
     Route: 048
  8. BETAISODONA [Suspect]
     Indication: DRUG USE FOR UNKNOWN INDICATION
     Route: 061
  9. FOLIC ACID W/IRON [Suspect]
     Indication: DRUG USE FOR UNKNOWN INDICATION
     Route: 048
  10. NEOMYCIN + POLYMYXIN B SULFATES + DEXAMETHASONE [Suspect]
     Indication: CONJUNCTIVITIS
     Route: 047
  11. ALL OTHER THERAPEUTIC PRODUCTS [Suspect]
     Indication: DRUG USE FOR UNKNOWN INDICATION
     Route: 048

REACTIONS (1)
  - STEVENS-JOHNSON SYNDROME [None]
